FAERS Safety Report 5844953-3 (Version None)
Quarter: 2008Q3

REPORT INFORMATION
  Report Type: 
  Country: None (occurrence: None)
  Receive Date: 20080813
  Receipt Date: 20080813
  Transmission Date: 20090109
  Serious: Yes (Life-Threatening)
  Sender: FDA-Public Use
  Company Number: None

PATIENT
  Age: 50 Year
  Sex: Female
  Weight: 78.4723 kg

DRUGS (1)
  1. HYDROXYCHLOROQUINE SULFATE [Suspect]
     Indication: RHEUMATOID ARTHRITIS
     Dates: start: 20080708, end: 20080728

REACTIONS (16)
  - ARTHRALGIA [None]
  - BRONCHITIS [None]
  - BURSITIS [None]
  - DRY MOUTH [None]
  - DYSPNOEA [None]
  - ERYTHEMA MULTIFORME [None]
  - FEELING ABNORMAL [None]
  - INFLUENZA LIKE ILLNESS [None]
  - LIP DRY [None]
  - MALAISE [None]
  - PAIN [None]
  - SCIATICA [None]
  - SKIN HYPERTROPHY [None]
  - STEVENS-JOHNSON SYNDROME [None]
  - SWOLLEN TONGUE [None]
  - TONGUE OEDEMA [None]
